FAERS Safety Report 7803967-4 (Version None)
Quarter: 2011Q4

REPORT INFORMATION
  Report Type: 
  Country: None (occurrence: None)
  Receive Date: 20111010
  Receipt Date: 20111005
  Transmission Date: 20120403
  Serious: Yes (Other)
  Sender: FDA-Public Use
  Company Number: US-B.I. PHARMACEUTICALS,INC./RIDGEFIELD-2011-BP-23673BP

PATIENT

DRUGS (1)
  1. PRADAXA [Suspect]

REACTIONS (2)
  - GASTROINTESTINAL DISORDER [None]
  - ASCITES [None]
